FAERS Safety Report 9603806 (Version 2)
Quarter: 2013Q4

REPORT INFORMATION
  Report Type: Report from Study
  Country: AR (occurrence: AR)
  Receive Date: 20131008
  Receipt Date: 20131017
  Transmission Date: 20140711
  Serious: Yes (Hospitalization)
  Sender: FDA-Public Use
  Company Number: AR-ROCHE-1284807

PATIENT
  Sex: Male

DRUGS (2)
  1. MABTHERA [Suspect]
     Indication: GRANULOMATOSIS WITH POLYANGIITIS
     Route: 065
  2. MABTHERA [Suspect]
     Indication: ANTINEUTROPHIL CYTOPLASMIC ANTIBODY

REACTIONS (2)
  - Pulmonary oedema [Unknown]
  - Cardiac failure [Unknown]
